FAERS Safety Report 25640020 (Version 1)
Quarter: 2025Q3

REPORT INFORMATION
  Report Type: Spontaneous
  Country: US (occurrence: None)
  Receive Date: 20250803
  Receipt Date: 20250803
  Transmission Date: 20251021
  Serious: Yes (Hospitalization)
  Sender: FDA-CTU
  Company Number: None

PATIENT
  Age: 87 Year
  Sex: Female
  Weight: 81.4 kg

DRUGS (2)
  1. EVEROLIMUS [Suspect]
     Active Substance: EVEROLIMUS
  2. SORAFENIB [Suspect]
     Active Substance: SORAFENIB

REACTIONS (1)
  - Pleural effusion [None]

NARRATIVE: CASE EVENT DATE: 20180505
